FAERS Safety Report 9302673 (Version 1)
Quarter: 2013Q2

REPORT INFORMATION
  Report Type: Spontaneous
  Country: SE (occurrence: SE)
  Receive Date: 20130522
  Receipt Date: 20130522
  Transmission Date: 20140414
  Serious: Yes (Death, Other)
  Sender: FDA-Public Use
  Company Number: SE-UCBSA-085965

PATIENT
  Age: 59 Year
  Sex: Male

DRUGS (1)
  1. KEPPRA [Suspect]
     Dosage: DOSE:250 MG
     Dates: start: 2010, end: 20120604

REACTIONS (2)
  - Death [Fatal]
  - Epilepsy [Unknown]
